FAERS Safety Report 19010633 (Version 1)
Quarter: 2021Q1

REPORT INFORMATION
  Report Type: Spontaneous
  Country: US (occurrence: US)
  Receive Date: 20210315
  Receipt Date: 20210315
  Transmission Date: 20210420
  Serious: Yes (Hospitalization)
  Sender: FDA-Public Use
  Company Number: None

PATIENT
  Age: 67 Year
  Sex: Male

DRUGS (1)
  1. RYDAPT [Suspect]
     Active Substance: MIDOSTAURIN
     Indication: LEUKAEMIA
     Route: 048
     Dates: start: 20210205

REACTIONS (3)
  - Chest pain [None]
  - Back pain [None]
  - Leukaemia [None]

NARRATIVE: CASE EVENT DATE: 202101
